FAERS Safety Report 6489859-4 (Version None)
Quarter: 2009Q4

REPORT INFORMATION
  Report Type: 
  Country: None (occurrence: None)
  Receive Date: 20091211
  Receipt Date: 20091203
  Transmission Date: 20100525
  Serious: Yes (Hospitalization, Other)
  Sender: FDA-Public Use
  Company Number: US-ELI_LILLY_AND_COMPANY-US200912001154

PATIENT
  Sex: Male
  Weight: 87.075 kg

DRUGS (9)
  1. BYETTA [Suspect]
     Indication: TYPE 2 DIABETES MELLITUS
     Dosage: 5 UG, 2/D
     Route: 058
     Dates: start: 20080101, end: 20080101
  2. BYETTA [Suspect]
     Dosage: 10 UG, 2/D
     Route: 058
     Dates: start: 20080101
  3. BYETTA [Suspect]
     Dosage: 10 UG, 2/D
     Route: 058
     Dates: start: 20080101
  4. METFORMIN HCL [Concomitant]
     Indication: DIABETES MELLITUS
     Dosage: UNK, UNKNOWN
  5. AVANDIA [Concomitant]
     Indication: DIABETES MELLITUS
  6. GLYBURIDE [Concomitant]
     Dosage: 10 MG, 2/D
     Dates: end: 20080101
  7. GLYBURIDE [Concomitant]
     Dosage: 10 MG, 2/D
     Dates: start: 20091018, end: 20091122
  8. BABY ASPIRIN [Concomitant]
     Indication: PROPHYLAXIS
     Dates: start: 20091001
  9. VITAMINS [Concomitant]

REACTIONS (10)
  - AMNESIA [None]
  - ASTHENIA [None]
  - BLOOD GLUCOSE DECREASED [None]
  - BLOOD GLUCOSE INCREASED [None]
  - EXTRASYSTOLES [None]
  - FEELING ABNORMAL [None]
  - LOSS OF CONSCIOUSNESS [None]
  - MIGRAINE [None]
  - PALPITATIONS [None]
  - SYNCOPE [None]
